FAERS Safety Report 6959372-6 (Version None)
Quarter: 2010Q3

REPORT INFORMATION
  Report Type: 
  Country: None (occurrence: None)
  Receive Date: 20100831
  Receipt Date: 20100831
  Transmission Date: 20110219
  Serious: Yes (Hospitalization, Other)
  Sender: FDA-Public Use
  Company Number: None

PATIENT
  Sex: Male
  Weight: 52.7 kg

DRUGS (1)
  1. ENOXAPARIN SODIUM [Suspect]
     Indication: THROMBOSIS PROPHYLAXIS
     Dosage: 60 MG Q12H SQ
     Route: 058
     Dates: start: 20100501, end: 20100619

REACTIONS (8)
  - DIZZINESS [None]
  - FATIGUE [None]
  - HAEMATOMA [None]
  - MEDICAL DEVICE COMPLICATION [None]
  - POSTOPERATIVE WOUND INFECTION [None]
  - PYREXIA [None]
  - VOMITING [None]
  - WOUND HAEMORRHAGE [None]
